FAERS Safety Report 9746179 (Version 4)
Quarter: 2014Q1

REPORT INFORMATION
  Report Type: Spontaneous
  Country: TR (occurrence: TR)
  Receive Date: 20131211
  Receipt Date: 20140123
  Transmission Date: 20141002
  Serious: Yes (Life-Threatening, Hospitalization, Disabling, Other)
  Sender: FDA-Public Use
  Company Number: TR-GLAXOSMITHKLINE-B0949902A

PATIENT
  Age: 28 Year
  Sex: Male

DRUGS (1)
  1. NIQUITIN CQ LOZENGE [Suspect]
     Indication: EX-TOBACCO USER
     Route: 002
     Dates: start: 201204, end: 201304

REACTIONS (14)
  - Bipolar disorder [Not Recovered/Not Resolved]
  - Suicide attempt [Recovered/Resolved]
  - Deja vu [Recovered/Resolved]
  - Tachyphrenia [Unknown]
  - Insomnia [Recovered/Resolved]
  - Paranoia [Unknown]
  - Hallucination [Recovered/Resolved]
  - Intentional drug misuse [Unknown]
  - Lower limb fracture [Recovered/Resolved]
  - Upper limb fracture [Recovered/Resolved]
  - Jaw fracture [Recovered/Resolved]
  - Cognitive disorder [Recovered/Resolved]
  - Depression [Recovered/Resolved]
  - Tooth loss [Unknown]
